FAERS Safety Report 7813644-1 (Version None)
Quarter: 2011Q4

REPORT INFORMATION
  Report Type: 
  Country: None (occurrence: None)
  Receive Date: 20111014
  Receipt Date: 20090520
  Transmission Date: 20120403
  Serious: No
  Sender: FDA-Public Use
  Company Number: 2009BI015519

PATIENT
  Sex: Female

DRUGS (2)
  1. TYSABRI [Suspect]
     Indication: MULTIPLE SCLEROSIS
     Route: 042
     Dates: start: 20080417, end: 20080806
  2. TYSABRI [Suspect]
     Route: 042
     Dates: start: 20090306

REACTIONS (6)
  - BALANCE DISORDER [None]
  - BLINDNESS [None]
  - URINARY INCONTINENCE [None]
  - BLADDER DISORDER [None]
  - CONSTIPATION [None]
  - DYSPHAGIA [None]
